APPROVED DRUG PRODUCT: FLUOXETINE HYDROCHLORIDE
Active Ingredient: FLUOXETINE HYDROCHLORIDE
Strength: EQ 60MG BASE
Dosage Form/Route: TABLET;ORAL
Application: A211051 | Product #001
Applicant: TEVA PHARMACEUTICALS USA
Approved: Dec 3, 2018 | RLD: No | RS: No | Type: DISCN